FAERS Safety Report 16508274 (Version 1)
Quarter: 2019Q3

REPORT INFORMATION
  Report Type: Spontaneous
  Country: US (occurrence: US)
  Receive Date: 20190702
  Receipt Date: 20190702
  Transmission Date: 20191004
  Serious: No
  Sender: FDA-Public Use
  Company Number: US-ROCHE-2172433

PATIENT
  Sex: Female
  Weight: 52.21 kg

DRUGS (2)
  1. XELODA [Suspect]
     Active Substance: CAPECITABINE
     Route: 065
  2. XELODA [Suspect]
     Active Substance: CAPECITABINE
     Indication: BREAST CANCER METASTATIC
     Dosage: 2 WEEKS ON, ONE WEEK OFF
     Route: 065
     Dates: start: 201803

REACTIONS (3)
  - Dehydration [Unknown]
  - Diarrhoea [Recovering/Resolving]
  - Pain in extremity [Unknown]
